FAERS Safety Report 8794639 (Version 5)
Quarter: 2012Q4

REPORT INFORMATION
  Report Type: 
  Country: US (occurrence: US)
  Receive Date: 20120917
  Receipt Date: 20121121
  Transmission Date: 20130627
  Serious: No
  Sender: FDA-Public Use
  Company Number: US-VERTEX PHARMACEUTICAL INC.-2012-019883

PATIENT
  Age: 72 None
  Sex: Male
  Weight: 79 kg

DRUGS (4)
  1. INCIVEK [Suspect]
     Indication: HEPATITIS C
     Dosage: 750 mg, tid
     Route: 048
     Dates: start: 20120818, end: 20121110
  2. RIBAVIRIN [Suspect]
     Indication: HEPATITIS C
     Dosage: 600 mg AM 400 mg PM, bid
     Route: 048
     Dates: start: 20120818
  3. RIBAVIRIN [Suspect]
     Dosage: UNK
  4. PEGINTERFERON [Suspect]
     Indication: HEPATITIS C
     Dosage: 180 ?g, qw
     Route: 058
     Dates: start: 20120817

REACTIONS (11)
  - Pain in extremity [Not Recovered/Not Resolved]
  - Back pain [Not Recovered/Not Resolved]
  - Decreased appetite [Recovered/Resolved]
  - Fatigue [Not Recovered/Not Resolved]
  - Asthenia [Not Recovered/Not Resolved]
  - Rash papular [Not Recovered/Not Resolved]
  - Haemorrhoids [Recovered/Resolved]
  - Anorectal discomfort [Recovered/Resolved]
  - Dysgeusia [Recovered/Resolved]
  - Anal pruritus [Recovered/Resolved]
  - Nausea [Not Recovered/Not Resolved]
